FAERS Safety Report 7819407-5 (Version None)
Quarter: 2011Q4

REPORT INFORMATION
  Report Type: 
  Country: None (occurrence: None)
  Receive Date: 20111018
  Receipt Date: 20101217
  Transmission Date: 20120403
  Serious: No
  Sender: FDA-Public Use
  Company Number: US-ASTRAZENECA-2010SE59798

PATIENT
  Age: 22706 Day
  Sex: Female
  Weight: 81.6 kg

DRUGS (2)
  1. SYMBICORT [Suspect]
     Dosage: TOTAL DAILY DOSE 160MCG
     Route: 055
     Dates: start: 20080101
  2. PREDNISONE [Concomitant]

REACTIONS (4)
  - DYSPNOEA [None]
  - CHEST DISCOMFORT [None]
  - VOMITING [None]
  - DRUG DOSE OMISSION [None]
